FAERS Safety Report 4661562-2 (Version None)
Quarter: 2005Q2

REPORT INFORMATION
  Report Type: 
  Country: None (occurrence: None)
  Receive Date: 20050512
  Receipt Date: 20050512
  Transmission Date: 20051028
  Serious: Yes (Death)
  Sender: FDA-Public Use
  Company Number: None

PATIENT
  Sex: Male
  Weight: 90.7194 kg

DRUGS (10)
  1. GEODON [Suspect]
  2. DEXTROAMPHETAMINE [Concomitant]
  3. PRIMIDONE [Concomitant]
  4. ATENOLOL [Concomitant]
  5. DOCUSATE [Concomitant]
  6. TERAZOSIN HCL [Concomitant]
  7. WARFARIN [Concomitant]
  8. OMEPRAZOLE [Concomitant]
  9. AEROBID INHALER FLUNISOLIDE [Concomitant]
  10. PENTOXYFILLINE [Concomitant]

REACTIONS (5)
  - ATHEROSCLEROSIS [None]
  - DEMENTIA [None]
  - MYOCARDIAL INFARCTION [None]
  - RESPIRATORY FAILURE [None]
  - TREATMENT NONCOMPLIANCE [None]
